FAERS Safety Report 10974219 (Version 1)
Quarter: 2015Q1

REPORT INFORMATION
  Report Type: Spontaneous
  Country: US (occurrence: None)
  Receive Date: 20150331
  Receipt Date: 20150331
  Transmission Date: 20150721
  Serious: Yes (Hospitalization)
  Sender: FDA-Public Use
  Company Number: None

PATIENT
  Age: 70 Year
  Sex: Male
  Weight: 115 kg

DRUGS (1)
  1. BEVACIZUMAB [Suspect]
     Active Substance: BEVACIZUMAB
     Indication: GLIOBLASTOMA
     Dosage: 1,100.0  MG, Q 14 DAYS
     Route: 042
     Dates: start: 20141230

REACTIONS (4)
  - Seizure [None]
  - Muscle twitching [None]
  - Deep vein thrombosis [None]
  - Muscular weakness [None]

NARRATIVE: CASE EVENT DATE: 20150308
